FAERS Safety Report 23479403 (Version 1)
Quarter: 2024Q1

REPORT INFORMATION
  Report Type: Spontaneous
  Country: US (occurrence: US)
  Receive Date: 20240205
  Receipt Date: 20240205
  Transmission Date: 20240410
  Serious: No
  Sender: FDA-Public Use
  Company Number: US-TARO PHARMACEUTICALS USA INC.-2023TAR00643

PATIENT

DRUGS (2)
  1. KETOCONAZOLE [Suspect]
     Active Substance: KETOCONAZOLE
     Indication: Fungal infection
     Dosage: UNK, OD, CHEST
     Route: 061
     Dates: start: 20230605
  2. KETOCONAZOLE [Suspect]
     Active Substance: KETOCONAZOLE
     Dosage: UNK, ONCE IN THE MORNING AND ONCE IN THE EVENING, CHEST
     Route: 061
     Dates: start: 20230606

REACTIONS (2)
  - Application site pain [Unknown]
  - Application site irritation [Unknown]

NARRATIVE: CASE EVENT DATE: 20230606
